FAERS Safety Report 7323384-3 (Version None)
Quarter: 2011Q1

REPORT INFORMATION
  Report Type: 
  Country: None (occurrence: None)
  Receive Date: 20110203
  Receipt Date: 20110119
  Transmission Date: 20110831
  Serious: Yes (Hospitalization)
  Sender: FDA-Public Use
  Company Number: 2011027413

PATIENT
  Age: 56 Year
  Sex: Female

DRUGS (2)
  1. ZEMAIRA [Suspect]
     Indication: OBSTRUCTIVE AIRWAYS DISORDER
     Dosage: 50 MG/KG 1X/WEEK; INTRAVENOUS (NOT OTHERWISE SPECIFIED,
     Route: 042
     Dates: start: 20110105
  2. ZEMAIRA [Suspect]
     Indication: OBSTRUCTIVE AIRWAYS DISORDER
     Dosage: 50 MG/KG 1X/WEEK; INTRAVENOUS (NOT OTHERWISE SPECIFIED,
     Route: 042
     Dates: start: 20101101

REACTIONS (3)
  - LIP SWELLING [None]
  - HYPOAESTHESIA [None]
  - PARAESTHESIA [None]
